FAERS Safety Report 9051324 (Version 5)
Quarter: 2013Q4

REPORT INFORMATION
  Report Type: Report from Study
  Country: JP (occurrence: JP)
  Receive Date: 20130206
  Receipt Date: 20131127
  Transmission Date: 20140711
  Serious: Yes (Hospitalization)
  Sender: FDA-Public Use
  Company Number: JP-MSD-1207JPN001991

PATIENT
  Age: 60 Year
  Sex: Female

DRUGS (12)
  1. ZOLINZA CAPSULES 100MG [Suspect]
     Indication: MYCOSIS FUNGOIDES
     Dosage: 300 MG, QD
     Route: 048
     Dates: start: 20120530, end: 20120618
  2. ZOLINZA CAPSULES 100MG [Suspect]
     Dosage: 200 MG, QD
     Route: 048
     Dates: start: 20120626
  3. ZOLINZA CAPSULES 100MG [Suspect]
     Dosage: 300 MG, QD, TAKE FOR 5 DAYS AND STOP FOR 2 DAYS EVERY 7 DAYS
     Route: 048
     Dates: start: 20120708
  4. ZOLINZA CAPSULES 100MG [Suspect]
     Dosage: 400 MG, QD, FIVE TWO YAS
     Route: 048
     Dates: start: 20120801, end: 20130301
  5. MAGLAX [Concomitant]
     Indication: CONSTIPATION
     Dosage: 500 MG, TID
     Route: 048
     Dates: start: 20120605
  6. MAGLAX [Concomitant]
     Dosage: 500 MG, TID
     Route: 048
     Dates: start: 20120605
  7. FAMOSTAGINE [Concomitant]
     Indication: NAUSEA
     Dosage: 20 MG, QD
     Route: 048
     Dates: start: 20120609, end: 20130301
  8. FAMOSTAGINE [Concomitant]
     Indication: VOMITING
  9. ALOXI [Concomitant]
     Indication: NAUSEA
     Dosage: 1 DF, QW
     Route: 051
     Dates: start: 20121225, end: 20130301
  10. ALOXI [Concomitant]
     Indication: VOMITING
  11. GASMOTIN [Concomitant]
     Indication: NAUSEA
     Dosage: 5 MG, TID
     Route: 048
     Dates: start: 20120614
  12. GASMOTIN [Concomitant]
     Indication: VOMITING

REACTIONS (9)
  - Decreased appetite [Recovering/Resolving]
  - Renal impairment [Not Recovered/Not Resolved]
  - White blood cell count decreased [Not Recovered/Not Resolved]
  - Nausea [Recovering/Resolving]
  - Renal impairment [Unknown]
  - Nausea [Recovering/Resolving]
  - Vomiting [Recovering/Resolving]
  - Drug ineffective [Unknown]
  - Weight decreased [Unknown]
